FAERS Safety Report 4476599-6 (Version None)
Quarter: 2004Q4

REPORT INFORMATION
  Report Type: 
  Country: None (occurrence: None)
  Receive Date: 20041013
  Receipt Date: 20040930
  Transmission Date: 20050328
  Serious: Yes (Other)
  Sender: FDA-Public Use
  Company Number: 2004075345

PATIENT
  Sex: Male

DRUGS (1)
  1. ZYRTEC [Suspect]
     Indication: EYE REDNESS

REACTIONS (9)
  - ASTHMA [None]
  - CARDIAC OPERATION [None]
  - COAGULOPATHY [None]
  - FALL [None]
  - INTESTINAL OBSTRUCTION [None]
  - JOINT INJURY [None]
  - LIVER DISORDER [None]
  - SLEEP APNOEA SYNDROME [None]
  - VITAMIN K DEFICIENCY [None]
